FAERS Safety Report 6433579-9 (Version None)
Quarter: 2009Q4

REPORT INFORMATION
  Report Type: 
  Country: None (occurrence: None)
  Receive Date: 20091106
  Receipt Date: 20091106
  Transmission Date: 20100525
  Serious: Yes (Disabling)
  Sender: FDA-Public Use
  Company Number: None

PATIENT
  Sex: Female
  Weight: 73.9363 kg

DRUGS (1)
  1. MEDROXYPROGESTERONE [Suspect]
     Indication: PREGNANCY
     Dosage: 150 MG
     Dates: start: 19930101, end: 20080101

REACTIONS (1)
  - OSTEOPOROSIS [None]
